FAERS Safety Report 6093292-7 (Version None)
Quarter: 2009Q1

REPORT INFORMATION
  Report Type: 
  Country: None (occurrence: None)
  Receive Date: 20090225
  Receipt Date: 20090225
  Transmission Date: 20090719
  Serious: Yes (Other)
  Sender: FDA-Public Use
  Company Number: None

PATIENT
  Sex: Male

DRUGS (2)
  1. CHLORZOXAZONE [Suspect]
     Indication: NECK INJURY
     Dosage: 500MG BID PO
     Route: 048
     Dates: start: 20051201, end: 20060101
  2. CHLORZOXAZONE [Suspect]
     Indication: SPONDYLITIS
     Dosage: 500MG BID PO
     Route: 048
     Dates: start: 20051201, end: 20060101

REACTIONS (3)
  - BRADYCARDIA [None]
  - DIZZINESS [None]
  - SOMNOLENCE [None]
